FAERS Safety Report 8297748-8 (Version None)
Quarter: 2012Q2

REPORT INFORMATION
  Report Type: 
  Country: None (occurrence: None)
  Receive Date: 20120419
  Receipt Date: 20120413
  Transmission Date: 20120825
  Serious: Yes (Other)
  Sender: FDA-Public Use
  Company Number: US-PFIZER INC-2011199667

PATIENT
  Sex: Female
  Weight: 61.224 kg

DRUGS (7)
  1. EFFEXOR [Suspect]
     Indication: ANXIETY
     Dosage: 150 MG, 3X/DAY
     Route: 048
  2. EFFEXOR XR [Suspect]
     Indication: ANXIETY
  3. EFFEXOR [Suspect]
     Dosage: 150 MG UNKNOWN FREQUENCY
  4. KLONOPIN [Concomitant]
     Indication: INSOMNIA
     Dosage: UNK, 3X/DAY
  5. EFFEXOR [Suspect]
     Indication: DEPRESSION
     Dosage: 150 MG, 2X/DAY
     Route: 048
     Dates: start: 20021001
  6. EFFEXOR [Suspect]
     Dosage: 150 MG, 1X/DAY
     Route: 048
  7. EFFEXOR XR [Suspect]
     Indication: DEPRESSION
     Dosage: UNK

REACTIONS (6)
  - FEELING ABNORMAL [None]
  - MALAISE [None]
  - WITHDRAWAL SYNDROME [None]
  - CORONARY ARTERY OCCLUSION [None]
  - PRESYNCOPE [None]
  - HYPERTENSION [None]
